FAERS Safety Report 6742862-9 (Version None)
Quarter: 2010Q2

REPORT INFORMATION
  Report Type: 
  Country: None (occurrence: None)
  Receive Date: 20100525
  Receipt Date: 20100514
  Transmission Date: 20101027
  Serious: Yes (Hospitalization, Other)
  Sender: FDA-Public Use
  Company Number: 007935

PATIENT
  Sex: Female
  Weight: 55.4 kg

DRUGS (5)
  1. CIMZIA [Suspect]
     Indication: CROHN'S DISEASE
     Dosage: (SUBCUTANEOUS)
     Route: 058
     Dates: start: 20090101, end: 20100101
  2. LEVOTHYROXINE SODIUM [Concomitant]
  3. ASACOL [Concomitant]
  4. MERCAPTOPURINE [Concomitant]
  5. PRENATAL VITAMINS /01549301/ [Concomitant]

REACTIONS (6)
  - BONE MARROW FAILURE [None]
  - INTESTINAL FISTULA [None]
  - PHARYNGEAL OEDEMA [None]
  - SEPSIS [None]
  - TACHYPHRENIA [None]
  - TRISMUS [None]
